FAERS Safety Report 19116010 (Version 1)
Quarter: 2021Q2

REPORT INFORMATION
  Report Type: Other
  Country: IT (occurrence: IT)
  Receive Date: 20210409
  Receipt Date: 20210409
  Transmission Date: 20210717
  Serious: Yes (Hospitalization, Other)
  Sender: FDA-Public Use
  Company Number: IT-VALIDUS PHARMACEUTICALS LLC-IT-2021VAL000487

PATIENT

DRUGS (11)
  1. RAMIPRIL. [Suspect]
     Active Substance: RAMIPRIL
     Indication: DRUG ABUSE
     Dosage: 35 MG, TOTAL
     Route: 048
     Dates: start: 20190227, end: 20190227
  2. PREGABALIN. [Suspect]
     Active Substance: PREGABALIN
     Indication: DRUG ABUSE
     Dosage: 14 DF, TOTAL
     Route: 048
     Dates: start: 20190227, end: 20190227
  3. OLANZAPINE. [Suspect]
     Active Substance: OLANZAPINE
     Indication: DRUG ABUSE
     Dosage: 175 MG, TOTAL
     Route: 048
     Dates: start: 20190227, end: 20190227
  4. BARNIDIPINE HYDROCHLORIDE [Suspect]
     Active Substance: BARNIDIPINE HYDROCHLORIDE
     Indication: DRUG ABUSE
     Dosage: 140 MG, TOTAL
     Route: 048
     Dates: start: 20190227, end: 20190227
  5. ACETYLSALICYLIC ACID [Suspect]
     Active Substance: ASPIRIN
     Indication: DRUG ABUSE
     Dosage: 7 DF, QD
     Route: 048
     Dates: start: 20190227, end: 20190227
  6. BISOPROLOL FUMARATE. [Suspect]
     Active Substance: BISOPROLOL FUMARATE
     Indication: DRUG ABUSE
     Dosage: 35 MG, TOTAL
     Route: 048
     Dates: start: 20190227, end: 20190227
  7. REPAGLINIDE. [Suspect]
     Active Substance: REPAGLINIDE
     Indication: DRUG ABUSE
     Dosage: 14 DF, TOTAL
     Route: 048
     Dates: start: 20190227, end: 20190227
  8. FUROSEMIDE. [Suspect]
     Active Substance: FUROSEMIDE
     Indication: DRUG ABUSE
     Dosage: 525 MG, TOTAL
     Route: 048
     Dates: start: 20190227, end: 20190227
  9. FERROUS SULFATE. [Suspect]
     Active Substance: FERROUS SULFATE
     Indication: DRUG ABUSE
     Dosage: 7 DF, TOTAL
     Route: 048
     Dates: start: 20190227, end: 20190227
  10. VENLAFAXINE HYDROCHLORIDE. [Suspect]
     Active Substance: VENLAFAXINE HYDROCHLORIDE
     Indication: DRUG ABUSE
     Dosage: 7 DF, TOTAL
     Route: 048
     Dates: start: 20190227, end: 20190227
  11. SIMVASTATIN. [Suspect]
     Active Substance: SIMVASTATIN
     Indication: DRUG ABUSE
     Dosage: 140 MG, TOTAL
     Route: 048
     Dates: start: 20190227, end: 20190227

REACTIONS (5)
  - Drug abuse [Unknown]
  - Electrocardiogram QT prolonged [Recovering/Resolving]
  - Sopor [Recovering/Resolving]
  - Intentional product misuse [Unknown]
  - Hypoxia [Recovering/Resolving]

NARRATIVE: CASE EVENT DATE: 20190227
